FAERS Safety Report 11122479 (Version 1)
Quarter: 2015Q2

REPORT INFORMATION
  Report Type: Report from Study
  Country: IR (occurrence: IR)
  Receive Date: 20150519
  Receipt Date: 20150519
  Transmission Date: 20150821
  Serious: Yes (Other)
  Sender: FDA-Public Use
  Company Number: IR-GLAXOSMITHKLINE-IR2015GSK067826

PATIENT
  Age: 34 Month

DRUGS (4)
  1. HYCAMTIN [Suspect]
     Active Substance: TOPOTECAN HYDROCHLORIDE
     Indication: RETINOBLASTOMA
     Dosage: 20 UG, FOR 2 SESSIONS IN LEFT EYE
     Route: 042
  2. MELPHALAN [Suspect]
     Active Substance: MELPHALAN
     Indication: RETINOBLASTOMA
  3. MELPHALAN [Suspect]
     Active Substance: MELPHALAN
     Indication: VITREOUS DISORDER
     Dosage: 40 UG, 3 SESSIONS OF INTRAVITREAL INJECTION IN LEFT EYE
     Route: 042
  4. HYCAMTIN [Suspect]
     Active Substance: TOPOTECAN HYDROCHLORIDE
     Indication: VITREOUS DISORDER
     Dosage: 8 UG, FOR 2 SESSIONS IN LEFT EYE
     Route: 042

REACTIONS (3)
  - Vitreous haemorrhage [Unknown]
  - Neoplasm [Unknown]
  - Hypotonia [Unknown]
